FAERS Safety Report 22160112 (Version 2)
Quarter: 2024Q2

REPORT INFORMATION
  Report Type: Spontaneous
  Country: NL (occurrence: None)
  Receive Date: 20230331
  Receipt Date: 20240429
  Transmission Date: 20240716
  Serious: Yes (Life-Threatening)
  Sender: FDA-Public Use
  Company Number: 2023A074619

PATIENT
  Age: 66 Year
  Sex: Female
  Weight: 61 kg

DRUGS (4)
  1. DAPAGLIFLOZIN [Suspect]
     Active Substance: DAPAGLIFLOZIN
     Indication: Type 2 diabetes mellitus
     Dosage: 1DD1
     Dates: start: 20220101, end: 20230320
  2. METOPROLOL SUCCINATE [Concomitant]
     Active Substance: METOPROLOL SUCCINATE
     Dosage: TABLET MET GEREGULEERDE AFGIFTE, 50 MG (MILLIGRAM) 50 MG (MILLIGRAM)
  3. TOBRAMYCIN SULFATE [Concomitant]
     Active Substance: TOBRAMYCIN SULFATE
     Dosage: 4DD1OO MG PO ALS SDD
  4. PANTOPRAZOLE [Concomitant]
     Active Substance: PANTOPRAZOLE
     Dosage: POEDER INJECTIEVLOEISTOF, 40 MG (MILLIGRAM) 40 MG (MILLIGRAM)

REACTIONS (2)
  - Hyponatraemia [Recovering/Resolving]
  - Diabetic ketoacidosis [Recovering/Resolving]
